FAERS Safety Report 13943763 (Version 2)
Quarter: 2017Q4

REPORT INFORMATION
  Report Type: Spontaneous
  Country: JP (occurrence: JP)
  Receive Date: 20170907
  Receipt Date: 20171011
  Transmission Date: 20180320
  Serious: Yes (Hospitalization, Other)
  Sender: FDA-Public Use
  Company Number: JP-ROCHE-1989705

PATIENT
  Age: 78 Year
  Sex: Male
  Weight: 51 kg

DRUGS (5)
  1. XELODA [Suspect]
     Active Substance: CAPECITABINE
     Indication: RECTOSIGMOID CANCER
     Dosage: 2 WEEKS ADMINISTRATION FOLLOWED BY 1 WEEK REST
     Route: 048
     Dates: start: 20170718, end: 20170721
  2. DAIKENCHUTO [Concomitant]
     Active Substance: HERBALS
     Route: 065
     Dates: start: 20170615, end: 20170721
  3. MOSAPRIDE CITRATE [Concomitant]
     Active Substance: MOSAPRIDE CITRATE
     Dosage: DOSAGE IS UNCERTAIN.
     Route: 065
     Dates: start: 20170615, end: 20170721
  4. MAGNESIUM OXIDE. [Concomitant]
     Active Substance: MAGNESIUM OXIDE
     Route: 065
     Dates: start: 20170515, end: 20170721
  5. OXALIPLATIN. [Suspect]
     Active Substance: OXALIPLATIN
     Indication: RECTOSIGMOID CANCER
     Route: 041

REACTIONS (6)
  - Platelet count decreased [Recovered/Resolved]
  - Acute kidney injury [Recovered/Resolved]
  - Palmar-plantar erythrodysaesthesia syndrome [Unknown]
  - Muscular weakness [Unknown]
  - Blood creatine phosphokinase increased [Unknown]
  - Stress cardiomyopathy [Unknown]

NARRATIVE: CASE EVENT DATE: 20170722
